FAERS Safety Report 5273853-5 (Version None)
Quarter: 2007Q1

REPORT INFORMATION
  Report Type: 
  Country: None (occurrence: None)
  Receive Date: 20070323
  Receipt Date: 20070313
  Transmission Date: 20070707
  Serious: Yes (Hospitalization, Congenital Anomaly)
  Sender: FDA-Public Use
  Company Number: NL-ROCHE-478696

PATIENT
  Sex: Male
  Weight: 2.3 kg

DRUGS (2)
  1. MYCOPHENOLATE MOFETIL [Suspect]
     Route: 064
  2. PREDNISOLONE [Concomitant]

REACTIONS (4)
  - ANAEMIA NEONATAL [None]
  - BONE MARROW FAILURE [None]
  - EAR MALFORMATION [None]
  - HYDROPS FOETALIS [None]
